FAERS Safety Report 24213605 (Version 1)
Quarter: 2024Q3

REPORT INFORMATION
  Report Type: Spontaneous
  Country: TW (occurrence: TW)
  Receive Date: 20240815
  Receipt Date: 20240815
  Transmission Date: 20241016
  Serious: Yes (Hospitalization)
  Sender: PFIZER
  Company Number: TW-PFIZER INC-PV202400106271

PATIENT
  Age: 69 Year
  Sex: Female

DRUGS (1)
  1. XELJANZ XR [Suspect]
     Active Substance: TOFACITINIB CITRATE
     Indication: Psoriatic arthropathy
     Dosage: 11 MG, QD
     Route: 048
     Dates: start: 20240205, end: 20240810

REACTIONS (1)
  - Acute endocarditis [Not Recovered/Not Resolved]

NARRATIVE: CASE EVENT DATE: 20240801
